FAERS Safety Report 5053031-5 (Version None)
Quarter: 2006Q3

REPORT INFORMATION
  Report Type: 
  Country: None (occurrence: None)
  Receive Date: 20060717
  Receipt Date: 20060707
  Transmission Date: 20061208
  Serious: Yes (Other)
  Sender: FDA-Public Use
  Company Number: US-JNJFOC-20060701363

PATIENT
  Sex: Female

DRUGS (7)
  1. REMICADE [Suspect]
     Indication: RHEUMATOID ARTHRITIS
     Route: 042
  2. PREDNISONE [Concomitant]
     Indication: RHEUMATOID ARTHRITIS
  3. METHOTREXATE [Concomitant]
     Indication: RHEUMATOID ARTHRITIS
  4. MAXZIDE [Concomitant]
  5. ATENOLOL [Concomitant]
  6. NEURONTIN [Concomitant]
  7. METFORMIN [Concomitant]

REACTIONS (7)
  - CARDIAC FIBRILLATION [None]
  - CONTUSION [None]
  - COUGH [None]
  - DYSPNOEA [None]
  - INFECTION [None]
  - LIPOMA [None]
  - RASH [None]
